FAERS Safety Report 5029176-2 (Version None)
Quarter: 2006Q2

REPORT INFORMATION
  Report Type: 
  Country: None (occurrence: None)
  Receive Date: 20060615
  Receipt Date: 20060615
  Transmission Date: 20061013
  Serious: Yes (Life-Threatening)
  Sender: FDA-Public Use
  Company Number: None

PATIENT
  Age: 57 Year
  Sex: Female

DRUGS (15)
  1. EPTIFIBATIDE  2MG/ML [Suspect]
     Indication: PERCUTANEOUS CORONARY INTERVENTION
     Dosage: 180MCG/KG  X1  IV BOLUS
     Route: 040
     Dates: start: 20060313, end: 20060314
  2. EPTIFIBATIDE  0.75MG/ML [Suspect]
     Dosage: 2MCG/KG/MIN  CONTINUOUS IV DRIP
     Route: 041
  3. ENOXAPARIN SODIUM [Concomitant]
  4. CLOPIDOGREL [Concomitant]
  5. NITROGLYCERIN [Concomitant]
  6. CLONIDINE [Concomitant]
  7. MELOXICAM [Concomitant]
  8. VALACYCLOVIR [Concomitant]
  9. PRENATAL VITAMINS [Concomitant]
  10. CETIRIZINE [Concomitant]
  11. MONTELUKAST [Concomitant]
  12. LISINOPRIL [Concomitant]
  13. ASPIRIN [Concomitant]
  14. HYDROCHLOROTHIAZIDE [Concomitant]
  15. ATENOLOL [Concomitant]

REACTIONS (1)
  - THROMBOCYTOPENIA [None]
